FAERS Safety Report 12216011 (Version 1)
Quarter: 2016Q1

REPORT INFORMATION
  Report Type: Spontaneous
  Country: US (occurrence: US)
  Receive Date: 20160329
  Receipt Date: 20160329
  Transmission Date: 20160526
  Serious: Yes (Other)
  Sender: FDA-Public Use
  Company Number: US-ROCHE-1731371

PATIENT
  Sex: Female

DRUGS (1)
  1. KLONOPIN [Suspect]
     Active Substance: CLONAZEPAM
     Indication: MOOD SWINGS
     Dosage: 1 MG TABLETS, 3 TIMES DAILY
     Route: 048

REACTIONS (2)
  - Chest pain [Unknown]
  - Cardiac disorder [Unknown]
